FAERS Safety Report 5425024-7 (Version None)
Quarter: 2007Q3

REPORT INFORMATION
  Report Type: 
  Country: None (occurrence: None)
  Receive Date: 20070822
  Receipt Date: 20070809
  Transmission Date: 20080115
  Serious: Yes (Death, Hospitalization)
  Sender: FDA-Public Use
  Company Number: 2007328819

PATIENT
  Sex: Female

DRUGS (3)
  1. BENADRYL [Suspect]
     Dosage: 2 BOTTLES, ORAL
     Route: 048
  2. TYLENOL PM (DIPHENHYDRAMINE, PARACETAMOL) [Suspect]
     Dosage: 6 BOTTLES, ORAL
     Route: 048
  3. ANTIPSYCHOTICS (ANTIPSYCHOTICS) [Concomitant]

REACTIONS (1)
  - INCORRECT DOSE ADMINISTERED [None]
